FAERS Safety Report 10158254 (Version 1)
Quarter: 2014Q2

REPORT INFORMATION
  Report Type: Spontaneous
  Country: SG (occurrence: SG)
  Receive Date: 20140507
  Receipt Date: 20140507
  Transmission Date: 20141212
  Serious: Yes (Other)
  Sender: FDA-Public Use
  Company Number: SG-ABBVIE-14P-141-1234897-00

PATIENT
  Sex: Male

DRUGS (1)
  1. KLACID [Suspect]
     Indication: PRODUCT USED FOR UNKNOWN INDICATION

REACTIONS (3)
  - Mouth ulceration [Unknown]
  - Mucosal ulceration [Unknown]
  - Lip swelling [Unknown]
